FAERS Safety Report 5248424-7 (Version None)
Quarter: 2007Q1

REPORT INFORMATION
  Report Type: 
  Country: None (occurrence: None)
  Receive Date: 20070222
  Receipt Date: 20070207
  Transmission Date: 20070707
  Serious: Yes (Death)
  Sender: FDA-Public Use
  Company Number: 100

PATIENT
  Sex: Male

DRUGS (1)
  1. FAZACLO ODT [Suspect]
     Indication: DEMENTIA
     Dosage: 100 MG PO DAILY
     Route: 048
     Dates: start: 20061225, end: 20070105

REACTIONS (2)
  - DEMENTIA [None]
  - DYSPHAGIA [None]
